FAERS Safety Report 14547304 (Version 1)
Quarter: 2018Q1

REPORT INFORMATION
  Report Type: Spontaneous
  Country: US (occurrence: US)
  Receive Date: 20180219
  Receipt Date: 20180219
  Transmission Date: 20180509
  Serious: Yes (Hospitalization)
  Sender: FDA-Public Use
  Company Number: US-BAYER-2018-026818

PATIENT
  Age: 2 Year
  Sex: Female
  Weight: 11.2 kg

DRUGS (8)
  1. LINEZOLID. [Suspect]
     Active Substance: LINEZOLID
     Indication: PULMONARY TUBERCULOSIS
     Dosage: UNK
     Dates: start: 20180118
  2. MOXIFLOXACIN ORAL [Suspect]
     Active Substance: MOXIFLOXACIN
     Indication: PULMONARY TUBERCULOSIS
     Dosage: 150 MG, QD
     Route: 048
     Dates: end: 20171213
  3. CLOFAZIMINE [Suspect]
     Active Substance: CLOFAZIMINE
     Indication: PULMONARY TUBERCULOSIS
     Dosage: UNK
     Dates: start: 20180118
  4. CYCLOSERINE. [Suspect]
     Active Substance: CYCLOSERINE
     Indication: PULMONARY TUBERCULOSIS
     Dosage: 150 MG, QD
     Route: 048
     Dates: end: 20171213
  5. CYCLOSERINE. [Suspect]
     Active Substance: CYCLOSERINE
     Indication: PULMONARY TUBERCULOSIS
     Dosage: UNK
     Dates: start: 20180118
  6. MOXIFLOXACIN ORAL [Suspect]
     Active Substance: MOXIFLOXACIN
     Indication: PULMONARY TUBERCULOSIS
     Dosage: UNK
     Dates: start: 20180118
  7. CLOFAZIMINE [Suspect]
     Active Substance: CLOFAZIMINE
     Indication: PULMONARY TUBERCULOSIS
     Dosage: 50 MG, QD
     Route: 048
     Dates: end: 20171213
  8. LINEZOLID. [Suspect]
     Active Substance: LINEZOLID
     Indication: PULMONARY TUBERCULOSIS
     Dosage: 90 MG, QD
     Route: 048
     Dates: end: 20171213

REACTIONS (2)
  - Hepatitis A [Recovered/Resolved]
  - Drug administered to patient of inappropriate age [None]

NARRATIVE: CASE EVENT DATE: 20171212
